FAERS Safety Report 7952526-1 (Version None)
Quarter: 2011Q4

REPORT INFORMATION
  Report Type: 
  Country: None (occurrence: None)
  Receive Date: 20111201
  Receipt Date: 20111128
  Transmission Date: 20120403
  Serious: Yes (Hospitalization, Other)
  Sender: FDA-Public Use
  Company Number: US-PFIZER INC-2011147862

PATIENT
  Sex: Male

DRUGS (2)
  1. AMOXICILLIN [Concomitant]
     Indication: ANTIBIOTIC THERAPY
     Dosage: UNK
     Dates: start: 20040101, end: 20110101
  2. CHANTIX [Suspect]
     Indication: SMOKING CESSATION THERAPY
     Dosage: STARTER PACK
     Dates: start: 20080501, end: 20080601

REACTIONS (5)
  - BIPOLAR DISORDER [None]
  - SUICIDAL BEHAVIOUR [None]
  - ANXIETY [None]
  - DRUG DEPENDENCE [None]
  - DEPRESSION [None]
